FAERS Safety Report 8911745 (Version 1)
Quarter: 2012Q4

REPORT INFORMATION
  Report Type: 
  Country: US (occurrence: US)
  Receive Date: 20121116
  Receipt Date: 20121116
  Transmission Date: 20130627
  Serious: Yes (Hospitalization)
  Sender: FDA-Public Use
  Company Number: US-MYLANLABS-2012S1009492

PATIENT
  Age: 55 Year
  Sex: Male
  Weight: 115.21 kg

DRUGS (6)
  1. AMLODIPINE [Suspect]
     Indication: HYPERTENSION
     Route: 048
     Dates: start: 20110613
  2. MICARDIS [Concomitant]
     Indication: HYPERTENSION
     Route: 048
     Dates: start: 201204
  3. ADVIL [Concomitant]
     Indication: PAIN
     Route: 048
     Dates: end: 201204
  4. TRAMADOL [Concomitant]
     Indication: PAIN
     Route: 048
  5. FLEXERIL [Concomitant]
     Indication: ANXIETY
     Route: 048
  6. IMODIUM [Concomitant]
     Indication: DIARRHOEA
     Route: 048

REACTIONS (7)
  - Drug effect decreased [Not Recovered/Not Resolved]
  - Blood pressure increased [Not Recovered/Not Resolved]
  - Epistaxis [Not Recovered/Not Resolved]
  - Nervousness [Not Recovered/Not Resolved]
  - Flushing [Not Recovered/Not Resolved]
  - Dizziness [Not Recovered/Not Resolved]
  - Diarrhoea [Not Recovered/Not Resolved]
